FAERS Safety Report 7853109-4 (Version None)
Quarter: 2011Q4

REPORT INFORMATION
  Report Type: 
  Country: None (occurrence: None)
  Receive Date: 20111026
  Receipt Date: 20111017
  Transmission Date: 20120403
  Serious: Yes (Other)
  Sender: FDA-Public Use
  Company Number: JP-CEPHALON-2011003222

PATIENT
  Sex: Male
  Weight: 52 kg

DRUGS (10)
  1. BENDAMUSTINE HCL [Suspect]
     Route: 042
     Dates: start: 20110214, end: 20110215
  2. MAGNESIUM OXIDE [Concomitant]
     Dates: start: 20110215
  3. ACETAMINOPHEN [Concomitant]
     Dates: start: 20110127, end: 20110201
  4. SULFAMETROLE W/TRIMETHOPRIM [Concomitant]
  5. BENDAMUSTINE HCL [Suspect]
     Route: 042
     Dates: start: 20110509, end: 20110510
  6. ALLOPURINOL [Concomitant]
     Dates: start: 20101227
  7. GRANISETRON HCL [Concomitant]
     Dates: start: 20101227, end: 20110215
  8. PLATELETS [Concomitant]
     Dates: start: 20101226, end: 20101226
  9. BENDAMUSTINE HCL [Suspect]
     Indication: MANTLE CELL LYMPHOMA
     Route: 042
     Dates: start: 20101227, end: 20101228
  10. BENDAMUSTINE HCL [Suspect]
     Route: 042
     Dates: start: 20110124, end: 20110125

REACTIONS (11)
  - GRANULOCYTE COUNT DECREASED [None]
  - PLATELET COUNT DECREASED [None]
  - NAUSEA [None]
  - RED BLOOD CELL COUNT DECREASED [None]
  - WHITE BLOOD CELL COUNT DECREASED [None]
  - LYMPHOCYTE COUNT DECREASED [None]
  - HERPES ZOSTER [None]
  - POST HERPETIC NEURALGIA [None]
  - NEUTROPHIL COUNT DECREASED [None]
  - HAEMOGLOBIN DECREASED [None]
  - VOMITING [None]
